FAERS Safety Report 7299784-7 (Version None)
Quarter: 2011Q1

REPORT INFORMATION
  Report Type: 
  Country: None (occurrence: None)
  Receive Date: 20110217
  Receipt Date: 20110203
  Transmission Date: 20110831
  Serious: Yes (Hospitalization)
  Sender: FDA-Public Use
  Company Number: CA-JNJFOC-20090907844

PATIENT
  Sex: Male
  Weight: 132.5 kg

DRUGS (7)
  1. USTEKINUMAB [Suspect]
     Route: 042
  2. CIPROFLOXACIN [Concomitant]
     Indication: CROHN'S DISEASE
     Route: 048
  3. PERCOCET [Concomitant]
     Indication: PROCTALGIA
     Route: 048
  4. PLACEBO [Suspect]
     Route: 058
  5. PLACEBO [Suspect]
     Indication: CROHN'S DISEASE
     Route: 058
  6. FLAGYL [Concomitant]
     Indication: CROHN'S DISEASE
     Route: 048
  7. USTEKINUMAB [Suspect]
     Indication: CROHN'S DISEASE
     Route: 042

REACTIONS (1)
  - PANCREATITIS ACUTE [None]
